FAERS Safety Report 9327720 (Version 2)
Quarter: 2013Q2

REPORT INFORMATION
  Report Type: Report from Study
  Country: CA (occurrence: CA)
  Receive Date: 20130604
  Receipt Date: 20130614
  Transmission Date: 20140414
  Serious: Yes (Other)
  Sender: FDA-Public Use
  Company Number: CA-JNJFOC-20130522943

PATIENT
  Age: 33 Year
  Sex: Female
  Weight: 105.8 kg

DRUGS (5)
  1. REMICADE [Suspect]
     Indication: CROHN^S DISEASE
     Dosage: ONCE EVERY 6 TO 8 WEEKS
     Route: 042
     Dates: start: 20071018
  2. VITAMINS NOS [Concomitant]
     Route: 065
  3. METHOTREXATE [Concomitant]
     Route: 065
  4. FOLIC ACID [Concomitant]
     Route: 065
  5. PLAQUENIL [Concomitant]
     Route: 065

REACTIONS (2)
  - Kidney infection [Recovering/Resolving]
  - Cystitis [Recovering/Resolving]
